FAERS Safety Report 11155120 (Version 1)
Quarter: 2015Q2

REPORT INFORMATION
  Report Type: Spontaneous
  Country: TR (occurrence: TR)
  Receive Date: 20150602
  Receipt Date: 20150602
  Transmission Date: 20150821
  Serious: Yes (Life-Threatening, Hospitalization)
  Sender: FDA-Public Use
  Company Number: TR-ROCHE-1560226

PATIENT
  Age: 16 Year
  Sex: Female
  Weight: 74 kg

DRUGS (2)
  1. XOLAIR [Suspect]
     Active Substance: OMALIZUMAB
     Indication: CHRONIC SPONTANEOUS URTICARIA
     Route: 058
     Dates: start: 20150210, end: 20150211
  2. XOLAIR [Suspect]
     Active Substance: OMALIZUMAB
     Route: 058
     Dates: start: 20150512, end: 20150512

REACTIONS (3)
  - Type I hypersensitivity [Recovered/Resolved]
  - Anaphylactic reaction [Recovered/Resolved]
  - Blood immunoglobulin E increased [Unknown]

NARRATIVE: CASE EVENT DATE: 20150210
